FAERS Safety Report 21877444 (Version 2)
Quarter: 2023Q1

REPORT INFORMATION
  Report Type: Spontaneous
  Country: US (occurrence: US)
  Receive Date: 20230118
  Receipt Date: 20230120
  Transmission Date: 20230418
  Serious: No
  Sender: FDA-Public Use
  Company Number: US-002147023-NVSC2023US009966

PATIENT
  Sex: Female

DRUGS (1)
  1. DEXTROAMPHET SACCHARAT, AMPHET ASPARTATE, DEXTROAMPHET SULFATE AND AMP [Suspect]
     Active Substance: AMPHETAMINE ASPARTATE\AMPHETAMINE SULFATE\DEXTROAMPHETAMINE SACCHARATE\DEXTROAMPHETAMINE SULFATE
     Indication: Head injury
     Dosage: UNK
     Route: 065
     Dates: start: 2010

REACTIONS (3)
  - Malaise [Not Recovered/Not Resolved]
  - Drug intolerance [Recovered/Resolved]
  - Product use in unapproved indication [Unknown]
